FAERS Safety Report 25130157 (Version 1)
Quarter: 2025Q1

REPORT INFORMATION
  Report Type: Spontaneous
  Country: FR (occurrence: FR)
  Receive Date: 20250327
  Receipt Date: 20250327
  Transmission Date: 20250409
  Serious: Yes (Other)
  Sender: AMGEN
  Company Number: FR-AMGEN-FRASP2025057503

PATIENT
  Age: 81 Year
  Sex: Female
  Weight: 50 kg

DRUGS (1)
  1. PROLIA [Suspect]
     Active Substance: DENOSUMAB
     Indication: Product used for unknown indication
     Dosage: 60 MILLIGRAM, Q6MO, 1 INJECTION EVERY 6 MONTHS
     Route: 065
     Dates: start: 20241028

REACTIONS (12)
  - Endocarditis [Unknown]
  - Pericarditis [Unknown]
  - Pelvic fracture [Unknown]
  - Fall [Unknown]
  - Shoulder fracture [Unknown]
  - Abdominal pain upper [Unknown]
  - Hernia [Unknown]
  - Red blood cells urine [Unknown]
  - Renal pain [Unknown]
  - Arthralgia [Unknown]
  - Urine output increased [Unknown]
  - White blood cell count increased [Unknown]
